FAERS Safety Report 4387122-9 (Version None)
Quarter: 2004Q2

REPORT INFORMATION
  Report Type: 
  Country: None (occurrence: None)
  Receive Date: 20040630
  Receipt Date: 20040311
  Transmission Date: 20050107
  Serious: No
  Sender: FDA-Public Use
  Company Number: US-GLAXOSMITHKLINE-A0502350A

PATIENT
  Age: 69 Year
  Sex: Female

DRUGS (11)
  1. ADVAIR HFA [Suspect]
     Indication: ASTHMA
     Dosage: 1PUFF TWICE PER DAY
     Route: 055
     Dates: start: 20040106
  2. COUMADIN [Concomitant]
  3. ZOCOR [Concomitant]
  4. SYNTHROID [Concomitant]
  5. CARDURA [Concomitant]
  6. ACCUPRIL [Concomitant]
  7. SINGULAIR [Concomitant]
  8. CLARINEX [Concomitant]
  9. BUSPIRONE [Concomitant]
  10. MULTIVITAMIN [Concomitant]
  11. CALCIUM [Concomitant]

REACTIONS (4)
  - COUGH [None]
  - DRUG INEFFECTIVE [None]
  - RASH GENERALISED [None]
  - WHEEZING [None]
